FAERS Safety Report 5157680-5 (Version None)
Quarter: 2006Q4

REPORT INFORMATION
  Report Type: 
  Country: None (occurrence: None)
  Receive Date: 20061127
  Receipt Date: 20060928
  Transmission Date: 20070319
  Serious: Yes (Other)
  Sender: FDA-Public Use
  Company Number: 2006PK02431

PATIENT
  Age: 30 Year
  Sex: Female

DRUGS (2)
  1. ZOMIG [Suspect]
     Indication: MIGRAINE
     Dosage: 2.5 MG TO 5 MG
     Route: 048
     Dates: start: 20060721, end: 20060901
  2. MIGRAINE-KRANIT [Concomitant]
     Indication: MIGRAINE
     Dosage: 2 DOSAGE FORMS AS REQUIRED
     Route: 048
     Dates: end: 20060901

REACTIONS (2)
  - DRUG EXPOSURE DURING PREGNANCY [None]
  - PREGNANCY [None]
